FAERS Safety Report 8790501 (Version 1)
Quarter: 2012Q4

REPORT INFORMATION
  Report Type: Spontaneous
  Country: AU (occurrence: None)
  Receive Date: 20120830
  Receipt Date: 20120830
  Transmission Date: 20130627
  Serious: Yes (Hospitalization)
  Sender: FDA-Public Use
  Company Number: GAM-169-12-AU

PATIENT
  Age: 35 Year
  Sex: Female

DRUGS (9)
  1. OCTAGAM [Suspect]
     Indication: IDIOPATHIC THROMBOCYTOPENIC PURPURA
     Dosage: (2x 1/cyclical)
 
(not otherwise specified)
     Route: 042
     Dates: start: 20120208, end: 20120208
  2. MYCOPHENOLATE [Concomitant]
  3. THYROXINE [Concomitant]
  4. ESCITALOPRAM [Concomitant]
  5. LYSINE [Concomitant]
  6. TACROLIMUS [Concomitant]
  7. VITAMIN D [Concomitant]
  8. PREDNISOLONE [Concomitant]
  9. OMEGA-3 FATTY ADD [Concomitant]

REACTIONS (6)
  - Headache [None]
  - Myalgia [None]
  - Arthralgia [None]
  - Troponin increased [None]
  - Pericarditis [None]
  - Infusion related reaction [None]
